FAERS Safety Report 15758492 (Version 2)
Quarter: 2018Q4

REPORT INFORMATION
  Report Type: Report from Study
  Country: GB (occurrence: GB)
  Receive Date: 20181225
  Receipt Date: 20181227
  Transmission Date: 20190205
  Serious: Yes (Other)
  Sender: FDA-Public Use
  Company Number: GB-TEVA-2018-GB-991482

PATIENT
  Age: 67 Year
  Sex: Male
  Weight: 96.9 kg

DRUGS (4)
  1. ZOLMITRIPTAN. [Concomitant]
     Active Substance: ZOLMITRIPTAN
     Indication: CLUSTER HEADACHE
     Route: 048
     Dates: start: 20110101
  2. FREMANEZUMAB [Suspect]
     Active Substance: FREMANEZUMAB
     Indication: CLUSTER HEADACHE
     Dosage: DB: FREMANEZUMAB 675MG OR 225MG OR 675MG LOADING DOSE FOLLOWED BY 225MG.
     Route: 058
     Dates: start: 20180725, end: 20181115
  3. AMITRIPTYLINE [Concomitant]
     Active Substance: AMITRIPTYLINE
     Indication: CLUSTER HEADACHE
     Dosage: 20 MILLIGRAM DAILY;
     Route: 048
     Dates: start: 20110101
  4. AMITRIPTYLINE [Concomitant]
     Active Substance: AMITRIPTYLINE
     Indication: SLEEP DISORDER

REACTIONS (1)
  - Amaurosis fugax [Recovered/Resolved]

NARRATIVE: CASE EVENT DATE: 20181124
